FAERS Safety Report 13275176 (Version 1)
Quarter: 2017Q1

REPORT INFORMATION
  Report Type: Report from Study
  Country: US (occurrence: US)
  Receive Date: 20170227
  Receipt Date: 20170227
  Transmission Date: 20170428
  Serious: Yes (Hospitalization)
  Sender: FDA-Public Use
  Company Number: PHHO2017US003855

PATIENT
  Sex: Female
  Weight: 62 kg

DRUGS (6)
  1. GSK1120212 [Suspect]
     Active Substance: TRAMETINIB
     Indication: NEOPLASM
     Dosage: 2 MG, QD
     Route: 048
     Dates: start: 20160209, end: 20161218
  2. GSK1120212 [Suspect]
     Active Substance: TRAMETINIB
     Indication: BRAF GENE MUTATION
     Dosage: UNK
     Route: 048
     Dates: start: 20161230
  3. GSK1120212 [Suspect]
     Active Substance: TRAMETINIB
     Indication: ADENOCARCINOMA
  4. GSK2118436 [Suspect]
     Active Substance: DABRAFENIB
     Indication: BRAF GENE MUTATION
     Dosage: UNK
     Route: 048
     Dates: start: 20161230
  5. GSK2118436 [Suspect]
     Active Substance: DABRAFENIB
     Indication: NEOPLASM
     Dosage: 150 MG, BID
     Route: 048
     Dates: start: 20161209, end: 20161219
  6. GSK2118436 [Suspect]
     Active Substance: DABRAFENIB
     Indication: ADENOCARCINOMA

REACTIONS (1)
  - Febrile neutropenia [Recovered/Resolved]

NARRATIVE: CASE EVENT DATE: 20161218
